FAERS Safety Report 5777571-6 (Version None)
Quarter: 2008Q2

REPORT INFORMATION
  Report Type: 
  Country: None (occurrence: None)
  Receive Date: 20080618
  Receipt Date: 20080609
  Transmission Date: 20081010
  Serious: Yes (Other)
  Sender: FDA-Public Use
  Company Number: CH-PFIZER INC-2007085466

PATIENT
  Sex: Female
  Weight: 53 kg

DRUGS (2)
  1. XALATAN [Suspect]
     Indication: GLAUCOMA
     Route: 061
     Dates: start: 20060101, end: 20071007
  2. ARTEOPTIC [Suspect]

REACTIONS (5)
  - BLEPHARITIS [None]
  - DRY SKIN [None]
  - ERYTHEMA [None]
  - OEDEMA [None]
  - PURPURA [None]
